FAERS Safety Report 25848816 (Version 1)
Quarter: 2025Q3

REPORT INFORMATION
  Report Type: Report from Study
  Country: US (occurrence: US)
  Receive Date: 20250925
  Receipt Date: 20250925
  Transmission Date: 20251021
  Serious: Yes (Other)
  Sender: MALLINCKRODT
  Company Number: US-MALLINCKRODT-MNK202505795

PATIENT
  Sex: Female
  Weight: 189 kg

DRUGS (1)
  1. CORTICOTROPIN [Suspect]
     Active Substance: CORTICOTROPIN
     Indication: Keratitis

REACTIONS (4)
  - Blood glucose increased [Unknown]
  - Weight loss poor [Unknown]
  - Drug interaction [Unknown]
  - Injection site bruising [Unknown]
